FAERS Safety Report 9466276 (Version 2)
Quarter: 2013Q4

REPORT INFORMATION
  Report Type: Spontaneous
  Country: US (occurrence: US)
  Receive Date: 20130820
  Receipt Date: 20131017
  Transmission Date: 20140711
  Serious: No
  Sender: FDA-Public Use
  Company Number: US-009507513-1308USA007082

PATIENT
  Age: 40 Year
  Sex: Male
  Weight: 99.77 kg

DRUGS (5)
  1. VICTRELIS [Suspect]
     Indication: HEPATITIS C
     Dosage: 800 MG, TID AS DIRECTED
     Route: 048
     Dates: start: 20130405
  2. PEGINTRON [Suspect]
     Indication: HEPATITIS C
     Dosage: 150 MICROGRAM, QW
     Route: 058
     Dates: start: 20130405
  3. REBETOL [Suspect]
     Route: 048
  4. LORAZEPAM [Concomitant]
  5. PAROXETINE [Concomitant]

REACTIONS (3)
  - Anaemia [Unknown]
  - Depressive symptom [Unknown]
  - Fatigue [Not Recovered/Not Resolved]
